FAERS Safety Report 4724912-4 (Version None)
Quarter: 2005Q3

REPORT INFORMATION
  Report Type: 
  Country: None (occurrence: None)
  Receive Date: 20050726
  Receipt Date: 20050715
  Transmission Date: 20060218
  Serious: Yes (Other)
  Sender: FDA-Public Use
  Company Number: US-JNJFOC-20050703143

PATIENT
  Age: 7 Year
  Sex: Female

DRUGS (2)
  1. CONCERTA [Suspect]
     Route: 048
  2. STRATTERA [Suspect]
     Indication: DRUG USE FOR UNKNOWN INDICATION
     Dosage: AT BEDTIME
     Route: 048

REACTIONS (2)
  - DELUSION [None]
  - HALLUCINATION, VISUAL [None]
